FAERS Safety Report 20511070 (Version 1)
Quarter: 2022Q1

REPORT INFORMATION
  Report Type: Spontaneous
  Country: US (occurrence: None)
  Receive Date: 20220223
  Receipt Date: 20220223
  Transmission Date: 20220424
  Serious: Yes (Death)
  Sender: FDA-Public Use
  Company Number: None

PATIENT
  Age: 76 Year
  Sex: Female

DRUGS (47)
  1. PROLIA [Suspect]
     Active Substance: DENOSUMAB
     Indication: Osteoporosis
     Dosage: OTHER FREQUENCY : Q 6 MONTH;?
     Route: 058
     Dates: start: 20200302, end: 20210902
  2. ACETAMINOPHEN AND CODEINE [Concomitant]
     Active Substance: ACETAMINOPHEN\CODEINE PHOSPHATE
  3. ALBUTEROL [Concomitant]
     Active Substance: ALBUTEROL
  4. AMLODIPINE BESYLATE [Concomitant]
  5. AMOXICILLIN\CLAVULANATE POTASSIUM [Concomitant]
     Active Substance: AMOXICILLIN\CLAVULANATE POTASSIUM
  6. AMOXICILLIN [Concomitant]
  7. BREO ELLIPTA [Concomitant]
     Active Substance: FLUTICASONE FUROATE\VILANTEROL TRIFENATATE
  8. BUMETANIDE [Concomitant]
     Active Substance: BUMETANIDE
  9. CALCITRIOL [Concomitant]
     Active Substance: CALCITRIOL
  10. CEFDINIR [Concomitant]
     Active Substance: CEFDINIR
  11. CEFUROXIME [Concomitant]
     Active Substance: CEFUROXIME
  12. CEPHALEXIN [Concomitant]
     Active Substance: CEPHALEXIN
  13. CIPROFLOXACIN [Concomitant]
     Active Substance: CIPROFLOXACIN
  14. CYCLOBENZAPRINE [Concomitant]
     Active Substance: CYCLOBENZAPRINE
  15. DICLOFENAC [Concomitant]
     Active Substance: DICLOFENAC
  16. DOXYCYCLINE HYCLATE [Concomitant]
     Active Substance: DOXYCYCLINE HYCLATE
  17. ELIQUIS [Suspect]
     Active Substance: APIXABAN
  18. FAMOTIDINE [Concomitant]
     Active Substance: FAMOTIDINE
  19. FERROUS SULFATE [Concomitant]
     Active Substance: FERROUS SULFATE
  20. LACTOBACILLUS ACIDOPHILUS\LACTOBACILLUS DELBRUECKII SUBSP. BULGARICUS [Concomitant]
     Active Substance: LACTOBACILLUS ACIDOPHILUS\LACTOBACILLUS DELBRUECKII SUBSP. BULGARICUS
  21. FLUCONAZOLE [Concomitant]
     Active Substance: FLUCONAZOLE
  22. GABAPENTIN [Concomitant]
     Active Substance: GABAPENTIN
  23. HYDRALAZINE [Concomitant]
     Active Substance: HYDRALAZINE HYDROCHLORIDE
  24. Lantus Solostar pen [Concomitant]
  25. LEVEMIR [Concomitant]
     Active Substance: INSULIN DETEMIR
  26. LIDOCAINE [Concomitant]
     Active Substance: LIDOCAINE
  27. LINEZOLID [Concomitant]
     Active Substance: LINEZOLID
  28. LOSARTAN [Concomitant]
     Active Substance: LOSARTAN
  29. MELATONIN [Concomitant]
     Active Substance: MELATONIN
  30. METFORMIN [Concomitant]
     Active Substance: METFORMIN HYDROCHLORIDE
  31. METHOCARBAMOL [Concomitant]
     Active Substance: METHOCARBAMOL
  32. METOPROLOL TARTRATE [Concomitant]
     Active Substance: METOPROLOL TARTRATE
  33. NITROFURANTOIN MONOHYDRATE MACROCRYSTALS [Concomitant]
     Active Substance: NITROFURANTOIN\NITROFURANTOIN MONOHYDRATE
  34. NOVOLOG [Concomitant]
     Active Substance: INSULIN ASPART
  35. ONDANSETRON [Concomitant]
     Active Substance: ONDANSETRON
  36. OXYBUTYNIN [Concomitant]
     Active Substance: OXYBUTYNIN
  37. PRASUGREL [Concomitant]
     Active Substance: PRASUGREL
  38. PREGABALIN [Concomitant]
     Active Substance: PREGABALIN
  39. COLLAGENASE SANTYL [Concomitant]
     Active Substance: COLLAGENASE CLOSTRIDIUM HISTOLYTICUM
  40. SENNA [Concomitant]
     Active Substance: SENNA LEAF\SENNOSIDES\SENNOSIDES A AND B
  41. SIMVASTATIN [Concomitant]
     Active Substance: SIMVASTATIN
  42. BACTRIM [Concomitant]
     Active Substance: SULFAMETHOXAZOLE\TRIMETHOPRIM
  43. SYMBICORT [Concomitant]
     Active Substance: BUDESONIDE\FORMOTEROL FUMARATE DIHYDRATE
  44. TIZANIDINE [Concomitant]
     Active Substance: TIZANIDINE
  45. TRAMADOL [Concomitant]
     Active Substance: TRAMADOL
  46. VITAMIN D2 [Concomitant]
     Active Substance: ERGOCALCIFEROL
  47. VITAMIN D3 [Concomitant]
     Active Substance: CHOLECALCIFEROL

REACTIONS (2)
  - COVID-19 pneumonia [None]
  - Renal failure [None]

NARRATIVE: CASE EVENT DATE: 20220122
